FAERS Safety Report 8694383 (Version 2)
Quarter: 2012Q4

REPORT INFORMATION
  Report Type: 
  Country: US (occurrence: US)
  Receive Date: 20120731
  Receipt Date: 20120912
  Transmission Date: 20130627
  Serious: Yes (Other)
  Sender: FDA-Public Use
  Company Number: US-ROCHE-1089134

PATIENT
  Age: 48 Year
  Sex: Male
  Weight: 94.43 kg

DRUGS (3)
  1. PEGASYS [Suspect]
     Indication: HEPATITIS C
     Route: 058
     Dates: start: 20120426, end: 20120717
  2. COPEGUS [Suspect]
     Indication: HEPATITIS C
     Route: 048
     Dates: start: 20120426, end: 20120717
  3. INCIVEK [Suspect]
     Indication: HEPATITIS C
     Route: 048
     Dates: start: 20120426, end: 20120716

REACTIONS (4)
  - Rash [Recovering/Resolving]
  - Swelling [Recovering/Resolving]
  - Eosinophil count increased [Recovering/Resolving]
  - Erythema [Unknown]
